FAERS Safety Report 5027963-8 (Version None)
Quarter: 2006Q2

REPORT INFORMATION
  Report Type: 
  Country: None (occurrence: None)
  Receive Date: 20060609
  Receipt Date: 20060530
  Transmission Date: 20061013
  Serious: Yes (Other)
  Sender: FDA-Public Use
  Company Number: B0426407A

PATIENT
  Age: 61 Year
  Sex: Male

DRUGS (4)
  1. LITHIUM SALT (FORMULATION UNKNOWN) (LITHIUM SALT) [Suspect]
     Indication: BIPOLAR DISORDER
     Dosage: VARIABLE DOSE
     Dates: start: 19920101
  2. VALPROIC ACID [Concomitant]
  3. GABAPENTIN [Concomitant]
  4. ARIPIPRAZOLE [Concomitant]

REACTIONS (7)
  - COGNITIVE DISORDER [None]
  - CONDITION AGGRAVATED [None]
  - DRUG EFFECT DECREASED [None]
  - DRUG LEVEL FLUCTUATING [None]
  - EXTRAPYRAMIDAL DISORDER [None]
  - SOMNOLENCE [None]
  - TREMOR [None]
